FAERS Safety Report 7919605-6 (Version None)
Quarter: 2011Q4

REPORT INFORMATION
  Report Type: 
  Country: None (occurrence: None)
  Receive Date: 20111117
  Receipt Date: 20111109
  Transmission Date: 20120403
  Serious: Yes (Other)
  Sender: FDA-Public Use
  Company Number: AT-JNJFOC-20111105338

PATIENT
  Sex: Male

DRUGS (5)
  1. SIMVASTATIN [Concomitant]
     Route: 065
  2. DEPAKENE [Concomitant]
     Route: 065
  3. AKINETON [Concomitant]
     Route: 065
  4. FLUTICASONE PROPIONATE/SALMETEROL [Concomitant]
     Route: 065
  5. RISPERDAL CONSTA [Suspect]
     Indication: SCHIZOPHRENIA
     Dosage: MORE THAN 3 YEARS
     Route: 030

REACTIONS (2)
  - OVERDOSE [None]
  - SUPRAVENTRICULAR TACHYCARDIA [None]
